FAERS Safety Report 11395141 (Version 1)
Quarter: 2015Q3

REPORT INFORMATION
  Report Type: Spontaneous
  Country: US (occurrence: None)
  Receive Date: 20150817
  Receipt Date: 20150817
  Transmission Date: 20151125
  Serious: Yes (Hospitalization)
  Sender: FDA-Public Use
  Company Number: None

PATIENT
  Age: 30 Month
  Sex: Male
  Weight: 79.83 kg

DRUGS (2)
  1. BUSPAR [Suspect]
     Active Substance: BUSPIRONE HYDROCHLORIDE
     Indication: ANXIETY
     Dosage: ONE TABLET UP TO 3 TIMES DAILY AS NEEDED TAKEN BY MOUTH
     Route: 048
     Dates: start: 20150616, end: 20150815
  2. BUSPAR [Suspect]
     Active Substance: BUSPIRONE HYDROCHLORIDE
     Indication: DEPRESSION
     Dosage: ONE TABLET UP TO 3 TIMES DAILY AS NEEDED TAKEN BY MOUTH
     Route: 048
     Dates: start: 20150616, end: 20150815

REACTIONS (6)
  - Affective disorder [None]
  - Abnormal behaviour [None]
  - Impaired driving ability [None]
  - Anxiety [None]
  - Sleep disorder [None]
  - Depression [None]
